FAERS Safety Report 9524411 (Version 2)
Quarter: 2013Q4

REPORT INFORMATION
  Report Type: Spontaneous
  Country: FR (occurrence: None)
  Receive Date: 20130912
  Receipt Date: 20131009
  Transmission Date: 20140711
  Serious: Yes (Life-Threatening, Hospitalization)
  Sender: FDA-Public Use
  Company Number: DSM-2013-00824

PATIENT
  Age: 80 Year
  Sex: Female
  Weight: 85 kg

DRUGS (6)
  1. OLMETEC [Suspect]
     Indication: HYPERTENSION
     Route: 048
     Dates: start: 201105, end: 20130315
  2. AERIUS (DESLORATADINE) (DESLORATADINE) [Concomitant]
  3. BEFIZAL (BEZAFIBRATE) (BEZAFIBRATE) [Concomitant]
  4. CACIT VITAMINE D3 (COLECALCIFEROL, CALCIUM CARBONATE) (COLECALCIFEROL, CACLIUM CARBONATE) [Concomitant]
  5. ESBERIVEN FORT (RUTOSIDE, MELILOTUS OFFICINALIS) (RUTOSIDE, MELILOTUS OFFICINALIS) [Concomitant]
  6. FUROSEMIDE [Concomitant]

REACTIONS (20)
  - Diarrhoea [None]
  - Apoptosis [None]
  - Dehydration [None]
  - Hypokalaemia [None]
  - Colitis ischaemic [None]
  - Duodenitis [None]
  - Weight decreased [None]
  - Venous thrombosis [None]
  - Hypoalbuminaemia [None]
  - Vitamin K deficiency [None]
  - Vitamin E deficiency [None]
  - Normochromic normocytic anaemia [None]
  - Autoimmune disorder [None]
  - Renal failure acute [None]
  - Metabolic acidosis [None]
  - Coma [None]
  - Haemodialysis [None]
  - Duodenal ulcer [None]
  - Diarrhoea [None]
  - Abnormal loss of weight [None]
